FAERS Safety Report 19974756 (Version 2)
Quarter: 2022Q4

REPORT INFORMATION
  Report Type: Spontaneous
  Country: US (occurrence: US)
  Receive Date: 20211020
  Receipt Date: 20221123
  Transmission Date: 20230113
  Serious: No
  Sender: FDA-Public Use
  Company Number: US-INSMED, INC.-2021-09246-US

PATIENT
  Sex: Male
  Weight: 50.748 kg

DRUGS (3)
  1. ARIKAYCE [Suspect]
     Active Substance: AMIKACIN
     Indication: Cystic fibrosis
     Dosage: 590 MILLIGRAM, QD
     Route: 055
     Dates: start: 20210816
  2. ARIKAYCE [Suspect]
     Active Substance: AMIKACIN
     Dosage: 590MCG/8.4MG/ML QD
     Route: 055
     Dates: start: 20210816
  3. AZITHROMYCIN [Concomitant]
     Active Substance: AZITHROMYCIN
     Indication: Product used for unknown indication
     Route: 065

REACTIONS (3)
  - Product administered to patient of inappropriate age [Unknown]
  - Off label use [Unknown]
  - Therapy interrupted [Unknown]
